FAERS Safety Report 17408153 (Version 1)
Quarter: 2020Q1

REPORT INFORMATION
  Report Type: Spontaneous
  Country: CA (occurrence: CA)
  Receive Date: 20200212
  Receipt Date: 20200212
  Transmission Date: 20200409
  Serious: Yes (Life-Threatening, Other)
  Sender: FDA-Public Use
  Company Number: CA-PFIZER INC-2020055251

PATIENT
  Age: 37 Year
  Sex: Female
  Weight: 100 kg

DRUGS (1)
  1. BEVACIZUMAB. [Suspect]
     Active Substance: BEVACIZUMAB
     Indication: RADIATION NECROSIS
     Dosage: 800 MG, UNK
     Route: 042

REACTIONS (8)
  - Nausea [Recovered/Resolved]
  - Diverticulum intestinal [Recovered/Resolved]
  - Haematuria [Recovered/Resolved]
  - Product use in unapproved indication [Unknown]
  - Gastrointestinal haemorrhage [Recovered/Resolved]
  - Off label use [Unknown]
  - Abdominal pain upper [Recovered/Resolved]
  - Haematochezia [Recovered/Resolved]
